FAERS Safety Report 4815876-3 (Version None)
Quarter: 2005Q4

REPORT INFORMATION
  Report Type: 
  Country: None (occurrence: None)
  Receive Date: 20051031
  Receipt Date: 20051020
  Transmission Date: 20060501
  Serious: Yes (Death, Other)
  Sender: FDA-Public Use
  Company Number: US-MERCK-0510USA05978

PATIENT
  Age: 50 Year
  Sex: Female
  Weight: 164 kg

DRUGS (19)
  1. VIOXX [Suspect]
     Indication: ARTHRALGIA
     Route: 048
     Dates: start: 20020111, end: 20030325
  2. WELLBUTRIN SR [Concomitant]
     Route: 065
  3. RISPERDAL [Concomitant]
     Route: 065
  4. RISPERDAL [Concomitant]
     Route: 065
  5. RISPERDAL [Concomitant]
     Route: 065
  6. HYDROCHLOROTHIAZIDE [Concomitant]
     Route: 065
  7. CALCIUM CARBONATE [Concomitant]
     Route: 065
  8. AMBIEN [Concomitant]
     Route: 065
  9. PAXIL [Concomitant]
     Route: 065
  10. HALOPERIDOL [Concomitant]
     Route: 065
  11. HYDROCHLOROTHIAZIDE AND TRIAMTERENE [Concomitant]
     Route: 065
  12. MOBIC [Concomitant]
     Route: 065
  13. PAXIL CR [Concomitant]
     Route: 065
  14. KLOR-CON [Concomitant]
     Route: 065
  15. HYDROCORTISONE VALERATE [Concomitant]
     Route: 065
  16. ACETAMINOPHEN AND CODEINE [Concomitant]
     Route: 065
  17. ACETAMINOPHEN AND HYDROCODONE BITARTRATE [Concomitant]
     Route: 065
  18. ACETAMINOPHEN AND HYDROCODONE BITARTRATE [Concomitant]
     Route: 065
  19. DESOXIMETASONE [Concomitant]
     Route: 065

REACTIONS (14)
  - ADRENAL MASS [None]
  - AORTIC ARTERIOSCLEROSIS [None]
  - ARTERIOSCLEROSIS [None]
  - ARTERIOSCLEROSIS CORONARY ARTERY [None]
  - CARDIOMEGALY [None]
  - EMPHYSEMA [None]
  - HEPATIC CONGESTION [None]
  - HEPATIC STEATOSIS [None]
  - HYPERTENSIVE HEART DISEASE [None]
  - MYOCARDIAL INFARCTION [None]
  - NEPHROSCLEROSIS [None]
  - OBESITY [None]
  - OSTEOARTHRITIS [None]
  - SPLEEN CONGESTION [None]
